FAERS Safety Report 7759263-7 (Version None)
Quarter: 2011Q3

REPORT INFORMATION
  Report Type: 
  Country: None (occurrence: None)
  Receive Date: 20110915
  Receipt Date: 20110907
  Transmission Date: 20111222
  Serious: Yes (Hospitalization)
  Sender: FDA-Public Use
  Company Number: 2010SP058593

PATIENT
  Age: 32 Year
  Sex: Female
  Weight: 63.5036 kg

DRUGS (3)
  1. NUVARING [Suspect]
     Indication: MENSTRUATION IRREGULAR
     Dosage: 1 DF, QM,
     Dates: start: 20070709, end: 20080101
  2. NUVARING [Suspect]
     Indication: CONTRACEPTION
     Dosage: 1 DF, QM,
     Dates: start: 20070709, end: 20080101
  3. PROTONIX [Concomitant]

REACTIONS (23)
  - PULMONARY INFARCTION [None]
  - ATELECTASIS [None]
  - BRONCHITIS [None]
  - DYSLIPIDAEMIA [None]
  - THROMBOSIS [None]
  - WEIGHT INCREASED [None]
  - MYALGIA [None]
  - PLEURISY [None]
  - LACERATION [None]
  - ELECTROENCEPHALOGRAM ABNORMAL [None]
  - MUSCULOSKELETAL PAIN [None]
  - MALAISE [None]
  - CERVICAL DYSPLASIA [None]
  - COUGH [None]
  - PULMONARY EMBOLISM [None]
  - ANXIETY [None]
  - ABDOMINAL PAIN [None]
  - DYSPNOEA [None]
  - LUNG CONSOLIDATION [None]
  - OEDEMA PERIPHERAL [None]
  - MULTIPLE INJURIES [None]
  - ROAD TRAFFIC ACCIDENT [None]
  - BRONCHOSPASM [None]
